FAERS Safety Report 25066612 (Version 1)
Quarter: 2025Q1

REPORT INFORMATION
  Report Type: Spontaneous
  Country: US (occurrence: US)
  Receive Date: 20250312
  Receipt Date: 20250312
  Transmission Date: 20250409
  Serious: Yes (Hospitalization)
  Sender: CHEPLAPHARM
  Company Number: US-ROCHE-10000220189

PATIENT
  Age: 29 Year
  Sex: Female
  Weight: 60.2 kg

DRUGS (8)
  1. CLONAZEPAM [Suspect]
     Active Substance: CLONAZEPAM
     Indication: Rapid eye movements sleep abnormal
     Dates: start: 202501
  2. CARBETOCIN [Suspect]
     Active Substance: CARBETOCIN
     Indication: Prader-Willi syndrome
     Dosage: DAILY DOSE: 10.6 MILLIGRAM
     Route: 045
     Dates: start: 20240219
  3. CARBETOCIN [Suspect]
     Active Substance: CARBETOCIN
     Indication: Hyperphagia
     Dosage: DAILY DOSE: 10.6 MILLIGRAM
     Route: 045
     Dates: start: 20240219
  4. CARBETOCIN [Suspect]
     Active Substance: CARBETOCIN
     Indication: Prader-Willi syndrome
     Dosage: DAILY DOSE: 10.6 MILLIGRAM
     Route: 045
     Dates: start: 20250211
  5. CARBETOCIN [Suspect]
     Active Substance: CARBETOCIN
     Indication: Hyperphagia
     Dosage: DAILY DOSE: 10.6 MILLIGRAM
     Route: 045
     Dates: start: 20250211
  6. CITALOPRAM [Concomitant]
     Active Substance: CITALOPRAM
     Dates: start: 201203
  7. DICLOFENAC SODIUM [Concomitant]
     Active Substance: DICLOFENAC SODIUM
     Dates: start: 20210709
  8. MODAFINIL [Concomitant]
     Active Substance: MODAFINIL
     Dates: start: 20191213

REACTIONS (2)
  - Hyponatraemia [Recovering/Resolving]
  - Off label use [Unknown]

NARRATIVE: CASE EVENT DATE: 20250101
